FAERS Safety Report 8251610-5 (Version None)
Quarter: 2012Q2

REPORT INFORMATION
  Report Type: 
  Country: None (occurrence: None)
  Receive Date: 20120402
  Receipt Date: 20120227
  Transmission Date: 20120825
  Serious: No
  Sender: FDA-Public Use
  Company Number: US-ABBOTT-12P-163-0909402-00

PATIENT
  Sex: Male
  Weight: 81.72 kg

DRUGS (11)
  1. SEREVENT [Concomitant]
     Indication: ASTHMA
  2. LORATADINE [Concomitant]
     Indication: HYPERSENSITIVITY
  3. VIMPAT [Concomitant]
     Indication: EPILEPSY
  4. ACTONEL [Concomitant]
     Indication: BONE DISORDER
  5. ALBUTEROL [Concomitant]
     Indication: ASTHMA
  6. PULMICORT [Concomitant]
     Indication: ASTHMA
     Route: 050
  7. DEXILANT [Concomitant]
     Indication: GASTROOESOPHAGEAL REFLUX DISEASE
  8. AMLODIPINE [Concomitant]
     Indication: HYPERTENSION
     Route: 048
  9. ANDROGEL [Suspect]
     Indication: BLOOD TESTOSTERONE DECREASED
     Dates: start: 20120201, end: 20120201
  10. AVAPRO [Concomitant]
     Indication: HYPERTENSION
  11. ESGIC-PLUS [Concomitant]
     Indication: MIGRAINE

REACTIONS (1)
  - BLOOD PRESSURE INCREASED [None]
